FAERS Safety Report 9082725 (Version 6)
Quarter: 2014Q2

REPORT INFORMATION
  Report Type: Spontaneous
  Country: US (occurrence: US)
  Receive Date: 20130218
  Receipt Date: 20140519
  Transmission Date: 20141212
  Serious: No
  Sender: FDA-Public Use
  Company Number: US-PFIZER INC-2013061058

PATIENT
  Age: 37 Year
  Sex: Female
  Weight: 63.95 kg

DRUGS (22)
  1. LYRICA [Suspect]
     Indication: FIBROMYALGIA
     Dosage: UNK
     Dates: start: 2005
  2. LYRICA [Suspect]
     Dosage: 200 MG, 3X/DAY
     Route: 048
     Dates: end: 201307
  3. LYRICA [Suspect]
     Dosage: 200 MG, 2X/DAY
  4. LYRICA [Suspect]
     Dosage: 200 MG, 3X/DAY
  5. XARELTO [Concomitant]
     Indication: THROMBOSIS
     Dosage: 20 MG, DAILY
  6. XARELTO [Concomitant]
     Indication: THROMBOSIS
  7. ATARAX [Concomitant]
     Indication: HYPERSENSITIVITY
     Dosage: 25 MG, 3X/DAY
  8. SEROQUEL [Concomitant]
     Indication: BIPOLAR DISORDER
     Dosage: 75 MG, DAILY
  9. SEROQUEL [Concomitant]
     Indication: ATTENTION DEFICIT/HYPERACTIVITY DISORDER
  10. TOPAMAX [Concomitant]
     Indication: MIGRAINE
     Dosage: 50 MG, 2X/DAY
  11. SINGULAIR [Concomitant]
     Indication: HYPERSENSITIVITY
     Dosage: 10 MG, DAILY
  12. DICYCLOMINE [Concomitant]
     Dosage: UNK
  13. B 12 [Concomitant]
     Dosage: UNK
  14. TRAMADOL [Concomitant]
     Dosage: UNK
  15. XANAX [Concomitant]
     Dosage: UNK
  16. FLUTICASONE [Concomitant]
     Dosage: UNK
  17. LASIX [Concomitant]
     Dosage: UNK
  18. TIZANIDINE [Concomitant]
     Dosage: UNK
  19. CELEXA [Concomitant]
     Indication: BIPOLAR DISORDER
     Dosage: 20 MG, DAILY
  20. CLONAZEPAM [Concomitant]
     Indication: ANXIETY
     Dosage: 0.50 MG, 2X/DAY
  21. ZANTAC [Concomitant]
     Indication: GASTRITIS
     Dosage: 150 MG, 2X/DAY
  22. LAMICTAL [Concomitant]
     Indication: MIGRAINE
     Dosage: 100 MG, 3X/DAY

REACTIONS (13)
  - Drug ineffective [Unknown]
  - Weight increased [Unknown]
  - Hypovitaminosis [Unknown]
  - Dry mouth [Not Recovered/Not Resolved]
  - Drug withdrawal syndrome [Unknown]
  - Neck pain [Unknown]
  - Pain in extremity [Unknown]
  - Back pain [Unknown]
  - Nervousness [Unknown]
  - Malaise [Unknown]
  - Muscle spasms [Unknown]
  - Migraine [Unknown]
  - Upper respiratory tract infection [Unknown]
